FAERS Safety Report 9346014 (Version 1)
Quarter: 2013Q2

REPORT INFORMATION
  Report Type: Spontaneous
  Country: CH (occurrence: CH)
  Receive Date: 20130613
  Receipt Date: 20130613
  Transmission Date: 20140414
  Serious: Yes (Other)
  Sender: FDA-Public Use
  Company Number: CHPA2013CH009554

PATIENT
  Age: 63 Year
  Sex: Female
  Weight: 68 kg

DRUGS (7)
  1. TAVEGYL [Suspect]
     Dosage: 2 MG, 1 PER 1 CYCLIC
     Route: 042
     Dates: start: 20120925
  2. DEXAMETHASONE [Suspect]
     Dosage: 20 MG, 1 PER 1 CYCLIC
     Route: 048
     Dates: start: 20120925
  3. ONDANSETRON [Suspect]
     Dosage: 8 MG, 1 PER 1 CYCLIC
     Route: 042
     Dates: start: 20120925
  4. CARBOPLATIN TEVA [Suspect]
     Indication: OVARIAN CANCER
     Dosage: 640 MG, 1 PER 1 CYCLIC
     Route: 042
     Dates: start: 20120925, end: 20130116
  5. TAXOL [Suspect]
     Dosage: 285 MG, 1 PER 1 CYCLIC
     Route: 042
     Dates: start: 20120925, end: 20130116
  6. AVASTIN [Suspect]
     Dosage: 1000 MG, 1 PER 1 AS NECESSARY
     Route: 042
     Dates: start: 20120925
  7. ZANTIC [Suspect]
     Dosage: 50 MG, 1 PER 1 CYCLIC
     Route: 042
     Dates: start: 20120925

REACTIONS (4)
  - Feeling hot [Recovered/Resolved]
  - Rash erythematous [Recovered/Resolved]
  - Dyspnoea [Recovered/Resolved]
  - Tachycardia [Recovered/Resolved]
